FAERS Safety Report 16908344 (Version 2)
Quarter: 2019Q4

REPORT INFORMATION
  Report Type: Spontaneous
  Country: JP (occurrence: JP)
  Receive Date: 20191011
  Receipt Date: 20191030
  Transmission Date: 20200122
  Serious: Yes (Hospitalization, Other)
  Sender: FDA-Public Use
  Company Number: JP-VIIV HEALTHCARE LIMITED-JP2019JPN181936

PATIENT
  Age: 26 Year
  Sex: Female
  Weight: 29 kg

DRUGS (3)
  1. ISENTRESS [Suspect]
     Active Substance: RALTEGRAVIR POTASSIUM
     Indication: HIV INFECTION
     Dosage: UNK
     Route: 048
  2. TIVICAY [Suspect]
     Active Substance: DOLUTEGRAVIR SODIUM
     Indication: HIV INFECTION
     Dosage: UNK
     Route: 048
  3. TRUVADA [Suspect]
     Active Substance: EMTRICITABINE\TENOFOVIR DISOPROXIL FUMARATE
     Indication: HIV INFECTION
     Dosage: UNK

REACTIONS (13)
  - Bronchospasm [Recovering/Resolving]
  - Swelling [Recovering/Resolving]
  - Erythema [Recovering/Resolving]
  - Condition aggravated [Recovering/Resolving]
  - Neck pain [Recovering/Resolving]
  - Lymphadenopathy mediastinal [Recovering/Resolving]
  - Dyspnoea exertional [Recovering/Resolving]
  - Lymph node tuberculosis [Recovering/Resolving]
  - Pulmonary tuberculosis [Recovering/Resolving]
  - Lymphadenopathy [Recovering/Resolving]
  - Immune reconstitution inflammatory syndrome [Unknown]
  - Cytomegalovirus test positive [Recovered/Resolved]
  - Treatment noncompliance [Unknown]
